FAERS Safety Report 8104546-4 (Version None)
Quarter: 2012Q1

REPORT INFORMATION
  Report Type: 
  Country: None (occurrence: None)
  Receive Date: 20120201
  Receipt Date: 20120127
  Transmission Date: 20120608
  Serious: Yes (Other)
  Sender: FDA-Public Use
  Company Number: GB-MERCK-1201GBR00090

PATIENT
  Age: 87 Year
  Sex: Male
  Weight: 80 kg

DRUGS (6)
  1. COZAAR [Suspect]
     Route: 048
     Dates: start: 20111214, end: 20120104
  2. EPROSARTAN [Concomitant]
     Route: 065
     Dates: start: 20110926
  3. INDAPAMIDE [Concomitant]
     Route: 065
     Dates: start: 20110926
  4. BECLOMETHASONE DIPROPIONATE [Concomitant]
     Route: 065
     Dates: start: 20111214, end: 20120111
  5. DILTIAZEM HYDROCHLORIDE [Concomitant]
     Route: 065
     Dates: start: 20110926
  6. PSYLLIUM HUSK [Concomitant]
     Route: 065
     Dates: start: 20111024

REACTIONS (3)
  - CONDITION AGGRAVATED [None]
  - PRURITUS [None]
  - RASH [None]
